FAERS Safety Report 9341768 (Version 1)
Quarter: 2013Q2

REPORT INFORMATION
  Report Type: Spontaneous
  Country: US (occurrence: None)
  Receive Date: 20130606
  Receipt Date: 20130606
  Transmission Date: 20140414
  Serious: Yes (Other)
  Sender: FDA-Public Use
  Company Number: AUR-APL-2013-04632

PATIENT
  Age: 83 Year
  Sex: Male

DRUGS (4)
  1. VENLAFAXINE (VENLAFAXINE) [Suspect]
     Indication: DEPRESSION
     Route: 048
  2. METOPROLOL (METOPROLOL) [Concomitant]
  3. ASPIRIN (ACETYLSALICYCLIC ACID) [Concomitant]
  4. COUMADIN (WARFARIN SODIUM) [Concomitant]

REACTIONS (6)
  - Somnolence [None]
  - Muscle spasms [None]
  - Dyskinesia [None]
  - Pain in extremity [None]
  - Hyperreflexia [None]
  - Skin discolouration [None]
